FAERS Safety Report 11289861 (Version 1)
Quarter: 2015Q3

REPORT INFORMATION
  Report Type: Report from Study
  Country: US (occurrence: US)
  Receive Date: 20150721
  Receipt Date: 20150721
  Transmission Date: 20151125
  Serious: Yes (Other)
  Sender: FDA-Public Use
  Company Number: US-GILEAD-2015-0162074

PATIENT
  Age: 77 Year
  Sex: Male

DRUGS (16)
  1. XGEVA [Concomitant]
     Active Substance: DENOSUMAB
  2. CALCIUM CARBONATE/VITAMIN D3 [Concomitant]
  3. SODIUM CHLORIDE. [Concomitant]
     Active Substance: SODIUM CHLORIDE
     Dosage: UNK
     Dates: end: 20150611
  4. TEMSIROLIMUS [Concomitant]
     Active Substance: TEMSIROLIMUS
     Dosage: UNK
     Dates: start: 20150128, end: 2015
  5. IDELALISIB [Suspect]
     Active Substance: IDELALISIB
     Indication: CHRONIC LYMPHOCYTIC LEUKAEMIA
     Dosage: 150 MG, BID
     Route: 048
     Dates: start: 20150221, end: 20150611
  6. TEMSIROLIMUS [Concomitant]
     Active Substance: TEMSIROLIMUS
     Dosage: UNK
     Dates: start: 20150304
  7. METAMUCIL                          /00091301/ [Concomitant]
  8. MAGNESIUM OXIDE. [Concomitant]
     Active Substance: MAGNESIUM OXIDE
  9. HEPARIN [Concomitant]
     Active Substance: HEPARIN SODIUM
     Dosage: UNK
     Dates: end: 20150611
  10. IDELALISIB [Suspect]
     Active Substance: IDELALISIB
     Dosage: 150 UNK, UNK
     Route: 048
     Dates: start: 20150618
  11. RITUXAN [Concomitant]
     Active Substance: RITUXIMAB
     Indication: CHRONIC LYMPHOCYTIC LEUKAEMIA
     Dosage: 500 MG, CYCLICAL
     Route: 065
     Dates: start: 20141028
  12. DILTIAZEM [Concomitant]
     Active Substance: DILTIAZEM
  13. SENOKOT [Concomitant]
     Active Substance: SENNOSIDES
  14. LASIX [Concomitant]
     Active Substance: FUROSEMIDE
     Indication: CARDIAC FAILURE CONGESTIVE
     Dosage: UNK
  15. ASA [Concomitant]
     Active Substance: ASPIRIN
  16. LOVASTATIN. [Concomitant]
     Active Substance: LOVASTATIN

REACTIONS (3)
  - Cardiac failure congestive [Unknown]
  - Rash [Unknown]
  - Dyspnoea [Unknown]

NARRATIVE: CASE EVENT DATE: 201506
